FAERS Safety Report 13089254 (Version 2)
Quarter: 2017Q1

REPORT INFORMATION
  Report Type: Spontaneous
  Country: FR (occurrence: FR)
  Receive Date: 20170105
  Receipt Date: 20170118
  Transmission Date: 20170428
  Serious: Yes (Other)
  Sender: FDA-Public Use
  Company Number: FR-PFIZER INC-2017000052

PATIENT
  Age: 21 Year
  Sex: Male

DRUGS (6)
  1. METHOTREXATE SODIUM. [Suspect]
     Active Substance: METHOTREXATE SODIUM
     Dosage: THE DOSE OF MTX WAS AGAIN INCREASED
  2. FOLINIC ACID [Concomitant]
     Active Substance: LEUCOVORIN
     Dosage: 25 MG, EVERY 6 HOURS
     Route: 041
  3. METHOTREXATE SODIUM. [Suspect]
     Active Substance: METHOTREXATE SODIUM
     Indication: OSTEOSARCOMA
     Dosage: 6 PREOPERATIVE WEEKLY CYCLES OF HD, CYCLIC
     Route: 042
  4. METHOTREXATE SODIUM. [Suspect]
     Active Substance: METHOTREXATE SODIUM
     Dosage: BASED ON THE INITIAL MTX DOSE OF 8 G/M2
  5. METHOTREXATE SODIUM. [Suspect]
     Active Substance: METHOTREXATE SODIUM
     Dosage: INCREASED BY A 2 G/M2 STEP, CYCLIC
     Route: 041
  6. METHOTREXATE SODIUM. [Suspect]
     Active Substance: METHOTREXATE SODIUM
     Dosage: 3RD CYCLE WAS ADMINISTERED AT THE FULL DOSE

REACTIONS (3)
  - Encephalitis [Recovered/Resolved]
  - Diarrhoea [Unknown]
  - Arachnoiditis [Recovered/Resolved]
